FAERS Safety Report 9314954 (Version 1)
Quarter: 2013Q2

REPORT INFORMATION
  Report Type: Spontaneous
  Country: US (occurrence: US)
  Receive Date: 20130529
  Receipt Date: 20130529
  Transmission Date: 20140414
  Serious: Yes (Other)
  Sender: FDA-Public Use
  Company Number: US-GLAXOSMITHKLINE-A0783328A

PATIENT
  Age: 52 Year
  Sex: Male
  Weight: 145.5 kg

DRUGS (1)
  1. AVANDIA [Suspect]
     Indication: TYPE 2 DIABETES MELLITUS
     Dosage: 8MG AS DIRECTED
     Route: 048
     Dates: start: 200609, end: 200702

REACTIONS (6)
  - Cardiac failure congestive [Not Recovered/Not Resolved]
  - Cardiac disorder [Unknown]
  - Fluid retention [Unknown]
  - Dyspnoea [Unknown]
  - Insomnia [Unknown]
  - Decreased activity [Unknown]
